FAERS Safety Report 21170822 (Version 5)
Quarter: 2022Q4

REPORT INFORMATION
  Report Type: Spontaneous
  Country: US (occurrence: None)
  Receive Date: 20220804
  Receipt Date: 20221028
  Transmission Date: 20230113
  Serious: Yes (Other)
  Sender: FDA-Public Use
  Company Number: US-Ultragenyx Pharmaceutical Inc.-US-UGNX-22-00479

PATIENT
  Sex: Female
  Weight: 72 kg

DRUGS (4)
  1. DOJOLVI [Suspect]
     Active Substance: TRIHEPTANOIN
     Indication: Carnitine palmitoyltransferase deficiency
     Route: 048
     Dates: start: 20220121, end: 20220802
  2. DOJOLVI [Suspect]
     Active Substance: TRIHEPTANOIN
     Route: 048
  3. DOJOLVI [Suspect]
     Active Substance: TRIHEPTANOIN
     Route: 048
     Dates: start: 202112
  4. DOJOLVI [Suspect]
     Active Substance: TRIHEPTANOIN
     Dates: start: 20220122, end: 20220719

REACTIONS (4)
  - Thrombosis [Unknown]
  - Hyperemesis gravidarum [Unknown]
  - Abdominal discomfort [Unknown]
  - Maternal exposure during pregnancy [Not Recovered/Not Resolved]
